FAERS Safety Report 8113908-0 (Version None)
Quarter: 2012Q1

REPORT INFORMATION
  Report Type: 
  Country: None (occurrence: None)
  Receive Date: 20120203
  Receipt Date: 20120202
  Transmission Date: 20120608
  Serious: Yes (Other)
  Sender: FDA-Public Use
  Company Number: BR-ROCHE-1026949

PATIENT
  Sex: Female
  Weight: 78 kg

DRUGS (2)
  1. XELODA [Suspect]
     Indication: GASTROINTESTINAL CARCINOMA
     Route: 048
     Dates: start: 20111101
  2. CARBAMAZEPINE [Concomitant]

REACTIONS (3)
  - THERMAL BURN [None]
  - CONVULSION [None]
  - SYNCOPE [None]
